FAERS Safety Report 11282708 (Version 1)
Quarter: 2015Q3

REPORT INFORMATION
  Report Type: Spontaneous
  Country: US (occurrence: None)
  Receive Date: 20150716
  Receipt Date: 20150716
  Transmission Date: 20151125
  Serious: Yes (Hospitalization, Other)
  Sender: FDA-Public Use
  Company Number: US-H14001-15-01294

PATIENT
  Age: 35 Year
  Sex: Female

DRUGS (8)
  1. PREDNISONE (PREDNISONE) (UNKNOWN) (PREDNISONE) [Suspect]
     Active Substance: PREDNISONE
     Indication: CHEMOTHERAPY
  2. ALLOPURINOL (ALLOPURINOL) UNKNOWN [Suspect]
     Active Substance: ALLOPURINOL
     Indication: PROPHYLAXIS
  3. RASBURICASE [Concomitant]
     Active Substance: RASBURICASE
  4. CYCLOPHOSPHAMIDE (CYCLOPHOSPHAMIDE) (UNKNOWN) (CYCLOPHOSAPHAMIDE) [Suspect]
     Active Substance: CYCLOPHOSPHAMIDE
     Indication: CHEMOTHERAPY
  5. DOXORUBICIN (DOXORUBICIN) (UNKNOWN) (DOXORUBICIN) [Suspect]
     Active Substance: DOXORUBICIN
     Indication: CHEMOTHERAPY
  6. FLUIDS (ALL OTHER THERAPEUTIC PRODUCTS) [Concomitant]
  7. RITUXIMAB (RITUXIMAB) (UNKNOWN) (RITUXIMAB) [Suspect]
     Active Substance: RITUXIMAB
     Indication: CHEMOTHERAPY
  8. VINCRISTINE (VINCRISTINE) (UNKNOWN) (VINCRISTINE) [Suspect]
     Active Substance: VINCRISTINE
     Indication: CHEMOTHERAPY

REACTIONS (9)
  - Diarrhoea [None]
  - Vomiting [None]
  - Blood phosphorus increased [None]
  - Blood uric acid increased [None]
  - Urine output decreased [None]
  - Blood potassium increased [None]
  - Nausea [None]
  - Haemodialysis [None]
  - Blood creatinine increased [None]
